FAERS Safety Report 10191655 (Version 1)
Quarter: 2014Q2

REPORT INFORMATION
  Report Type: Spontaneous
  Country: US (occurrence: None)
  Receive Date: 20140522
  Receipt Date: 20140522
  Transmission Date: 20141212
  Serious: No
  Sender: FDA-Public Use
  Company Number: None

PATIENT
  Age: 73 Year
  Sex: Female
  Weight: 68.2 kg

DRUGS (2)
  1. CARBOPLATIN [Suspect]
     Dates: start: 20140428
  2. PACLITAXEL (TAXOL) [Suspect]
     Dates: start: 20140428

REACTIONS (3)
  - Dehydration [None]
  - Diarrhoea [None]
  - Neutropenia [None]
